FAERS Safety Report 19323053 (Version 2)
Quarter: 2021Q2

REPORT INFORMATION
  Report Type: Spontaneous
  Country: US (occurrence: US)
  Receive Date: 20210528
  Receipt Date: 20210617
  Transmission Date: 20210717
  Serious: Yes (Hospitalization, Other)
  Sender: FDA-Public Use
  Company Number: US-SA-2021SA174094

PATIENT
  Age: 65 Year
  Sex: Female

DRUGS (2)
  1. DALFAMPRIDINE EXTENDED RELEASE [Suspect]
     Active Substance: DALFAMPRIDINE
  2. AUBAGIO [Suspect]
     Active Substance: TERIFLUNOMIDE
     Indication: MULTIPLE SCLEROSIS
     Dosage: UNK
     Route: 048
     Dates: start: 20160824

REACTIONS (2)
  - Multiple sclerosis relapse [Unknown]
  - Hospitalisation [Unknown]

NARRATIVE: CASE EVENT DATE: 202104
